FAERS Safety Report 11219690 (Version 1)
Quarter: 2015Q2

REPORT INFORMATION
  Report Type: Spontaneous
  Country: US (occurrence: US)
  Receive Date: 20150625
  Receipt Date: 20150625
  Transmission Date: 20150821
  Serious: Yes (Hospitalization, Other)
  Sender: FDA-Public Use
  Company Number: US-GLAXOSMITHKLINE-US2015090316

PATIENT
  Age: 72 Year
  Sex: Male
  Weight: 61.22 kg

DRUGS (5)
  1. ADVAIR DISKUS [Suspect]
     Active Substance: FLUTICASONE PROPIONATE\SALMETEROL XINAFOATE
     Indication: PNEUMOTHORAX
     Dosage: 1 PUFF(S), BID
     Route: 055
     Dates: start: 20150522
  2. ALBUTEROL. [Concomitant]
     Active Substance: ALBUTEROL
  3. NYSTATIN. [Concomitant]
     Active Substance: NYSTATIN
  4. ADVAIR DISKUS [Suspect]
     Active Substance: FLUTICASONE PROPIONATE\SALMETEROL XINAFOATE
     Indication: PNEUMOTHORAX
  5. LORTAB (LORATADINE) [Concomitant]

REACTIONS (8)
  - Pneumothorax [Recovered/Resolved]
  - Candida infection [Recovering/Resolving]
  - Pneumonia [Unknown]
  - Abdominal discomfort [Recovered/Resolved]
  - Lung operation [Recovered/Resolved]
  - Dysphonia [Not Recovered/Not Resolved]
  - Weight decreased [Not Recovered/Not Resolved]
  - Device use error [Recovered/Resolved]

NARRATIVE: CASE EVENT DATE: 201506
